FAERS Safety Report 9477548 (Version 1)
Quarter: 2013Q3

REPORT INFORMATION
  Report Type: Report from Study
  Country: US (occurrence: US)
  Receive Date: 20130827
  Receipt Date: 20130827
  Transmission Date: 20140515
  Serious: Yes (Hospitalization)
  Sender: FDA-Public Use
  Company Number: US-ACTELION-A-NJ2013-87382

PATIENT
  Age: 64 Year
  Sex: Female

DRUGS (5)
  1. TRACLEER [Suspect]
     Indication: PULMONARY ARTERIAL HYPERTENSION
     Dosage: 125 MG, BID
     Route: 048
     Dates: start: 2010
  2. TRACLEER [Suspect]
     Dosage: 62.5 MG, BID
     Route: 048
     Dates: start: 2010, end: 2010
  3. LASIX [Concomitant]
     Dosage: 20 MG, BID
     Dates: start: 2011
  4. BENAZEPRIL [Concomitant]
     Dosage: 10 MG, QD
     Dates: start: 2011
  5. TYVASO [Concomitant]
     Dosage: 1.74 MG, QID (9 PUFFS)
     Dates: start: 2012

REACTIONS (3)
  - Haematochezia [Not Recovered/Not Resolved]
  - Dyspnoea [Recovering/Resolving]
  - Anaemia [Not Recovered/Not Resolved]
